FAERS Safety Report 8807047 (Version 3)
Quarter: 2012Q4

REPORT INFORMATION
  Report Type: 
  Country: US (occurrence: US)
  Receive Date: 20120925
  Receipt Date: 20121024
  Transmission Date: 20130627
  Serious: Yes (Other)
  Sender: FDA-Public Use
  Company Number: US-BAYER-2012-098755

PATIENT
  Age: 67 Year
  Sex: Male
  Weight: 100 kg

DRUGS (2)
  1. ALKA-SELTZER PLUS NIGHT COLD MEDICINE [Suspect]
     Indication: SLEEP DISORDER THERAPY
     Dosage: 2 DF, UNK
     Route: 048
     Dates: start: 20120918, end: 20120918
  2. CATHETERIZED HIM [Concomitant]

REACTIONS (4)
  - Urinary retention [Not Recovered/Not Resolved]
  - Pelvic pain [Not Recovered/Not Resolved]
  - Groin pain [Not Recovered/Not Resolved]
  - Off label use [None]
